FAERS Safety Report 23836811 (Version 1)
Quarter: 2024Q2

REPORT INFORMATION
  Report Type: Spontaneous
  Country: US (occurrence: US)
  Receive Date: 20240509
  Receipt Date: 20240509
  Transmission Date: 20240716
  Serious: No
  Sender: FDA-Public Use
  Company Number: US-TAKEDA-2024TUS044272

PATIENT
  Sex: Male
  Weight: 66 kg

DRUGS (1)
  1. GAMMAGARD LIQUID [Suspect]
     Active Substance: HUMAN IMMUNOGLOBULIN G
     Indication: Myasthenia gravis
     Dosage: 25 GRAM, QD
     Route: 042
     Dates: start: 20240506

REACTIONS (5)
  - Product contamination [Unknown]
  - Product container issue [Unknown]
  - Product dose omission issue [Unknown]
  - Off label use [Unknown]
  - No adverse event [Unknown]
